FAERS Safety Report 7394067-9 (Version None)
Quarter: 2011Q2

REPORT INFORMATION
  Report Type: 
  Country: None (occurrence: None)
  Receive Date: 20110405
  Receipt Date: 20110105
  Transmission Date: 20111010
  Serious: No
  Sender: FDA-Public Use
  Company Number: US-AMGEN-USASP2011000711

PATIENT
  Age: 61 Year
  Sex: Female

DRUGS (4)
  1. DOXORUBICIN [Concomitant]
  2. PREDNISONE [Concomitant]
  3. NEULASTA [Suspect]
     Indication: CHEMOTHERAPY
     Dosage: 6 MG, UNK
     Dates: start: 20101215, end: 20110105
  4. CYCLOPHOSPHAMIDE [Concomitant]

REACTIONS (5)
  - PAIN IN EXTREMITY [None]
  - ARTHRALGIA [None]
  - MYALGIA [None]
  - NEUROPATHY PERIPHERAL [None]
  - BONE PAIN [None]
